FAERS Safety Report 19656694 (Version 1)
Quarter: 2021Q3

REPORT INFORMATION
  Report Type: Spontaneous
  Country: CA (occurrence: CA)
  Receive Date: 20210804
  Receipt Date: 20210804
  Transmission Date: 20211014
  Serious: Yes (Life-Threatening, Hospitalization, Other)
  Sender: FDA-Public Use
  Company Number: CA-ACCORD-234414

PATIENT
  Age: 5 Year
  Sex: Female
  Weight: 20 kg

DRUGS (18)
  1. BETAMETHASONE. [Concomitant]
     Active Substance: BETAMETHASONE
  2. VANCOMYCIN [Concomitant]
     Active Substance: VANCOMYCIN
  3. ZINC. [Concomitant]
     Active Substance: ZINC
  4. PARACETAMOL [Concomitant]
     Active Substance: ACETAMINOPHEN
  5. POLYETHYLENE GLYCOL [Concomitant]
     Active Substance: POLYETHYLENE GLYCOLS
  6. DEXAMETHASONE. [Concomitant]
     Active Substance: DEXAMETHASONE
     Dosage: LIQUID INTRA? ARTICULAR
  7. METOCLOPRAMIDE. [Concomitant]
     Active Substance: METOCLOPRAMIDE
  8. PENTAMIDINE [Concomitant]
     Active Substance: PENTAMIDINE
     Dosage: INJ 300MG/VIAL BP
  9. HEPARIN [Concomitant]
     Active Substance: HEPARIN SODIUM
  10. ONDANSETRON [Concomitant]
     Active Substance: ONDANSETRON
  11. CEFTAZIDIME/CEFTAZIDIME PENTAHYDRATE [Concomitant]
     Active Substance: CEFTAZIDIME
     Route: 030
  12. DIPHENHYDRAMINE. [Concomitant]
     Active Substance: DIPHENHYDRAMINE
  13. CARBOPLATIN. [Suspect]
     Active Substance: CARBOPLATIN
     Indication: NEPHROBLASTOMA
     Route: 042
  14. ETOPOSIDE. [Suspect]
     Active Substance: ETOPOSIDE
     Indication: NEPHROBLASTOMA
     Route: 042
  15. CYCLOPHOSPHAMIDE/CYCLOPHOSPHAMIDE MONOHYDRATE [Suspect]
     Active Substance: CYCLOPHOSPHAMIDE
     Indication: NEPHROBLASTOMA
     Route: 042
  16. DIMENHYDRINATE. [Concomitant]
     Active Substance: DIMENHYDRINATE
  17. EUCERIN [Concomitant]
     Active Substance: ENSULIZOLE\EUCERIN\OCTINOXATE\OCTISALATE\TITANIUM DIOXIDE\ZINC OXIDE
  18. MORPHINE [Concomitant]
     Active Substance: MORPHINE

REACTIONS (4)
  - Febrile neutropenia [Recovered/Resolved]
  - Pyrexia [Recovered/Resolved]
  - Aplasia [Recovered/Resolved]
  - Aplastic anaemia [Recovered/Resolved]
